FAERS Safety Report 4993971-6 (Version None)
Quarter: 2006Q2

REPORT INFORMATION
  Report Type: 
  Country: None (occurrence: None)
  Receive Date: 20060503
  Receipt Date: 20060503
  Transmission Date: 20061013
  Serious: Yes (Hospitalization)
  Sender: FDA-Public Use
  Company Number: None

PATIENT
  Age: 40 Year
  Sex: Female
  Weight: 70 kg

DRUGS (15)
  1. SOLU-MEDROL [Suspect]
     Indication: DRUG THERAPY
     Dosage: 1 MG/KG 12 HOUR IV
     Route: 042
  2. SOLU-MEDROL [Suspect]
     Indication: GRAFT VERSUS HOST DISEASE
     Dosage: 1 MG/KG 12 HOUR IV
     Route: 042
  3. SOLU-MEDROL [Suspect]
     Indication: PROPHYLAXIS AGAINST TRANSPLANT REJECTION
     Dosage: 1 MG/KG 12 HOUR IV
     Route: 042
  4. URSODIOL [Concomitant]
  5. CELLCEPT [Concomitant]
  6. FLUCONAZOLE [Concomitant]
  7. BACTRIM DS [Concomitant]
  8. PROTONIX [Concomitant]
  9. ZOLOFT [Concomitant]
  10. FENTANYL [Concomitant]
  11. GANCICLOVIR [Concomitant]
  12. POTASSIUM CHLORIDE [Concomitant]
  13. MAGNESIUM [Concomitant]
  14. CLARITIN [Concomitant]
  15. NEUPOGEN [Concomitant]

REACTIONS (3)
  - ASTHENIA [None]
  - BONE PAIN [None]
  - MYOPATHY STEROID [None]
